FAERS Safety Report 5199327-8 (Version None)
Quarter: 2006Q4

REPORT INFORMATION
  Report Type: 
  Country: None (occurrence: None)
  Receive Date: 20060919
  Receipt Date: 20060605
  Transmission Date: 20070319
  Serious: Yes (Other)
  Sender: FDA-Public Use
  Company Number: BDI-008308

PATIENT
  Age: 26 Year
  Sex: Male

DRUGS (3)
  1. MULTIHANCE [Suspect]
     Indication: HEADACHE
     Dosage: 10 ML ONCE IV
     Route: 042
     Dates: start: 20060604, end: 20060604
  2. MULTIHANCE [Suspect]
     Indication: INTRACRANIAL HYPOTENSION
     Dosage: 10 ML ONCE IV
     Route: 042
     Dates: start: 20060604, end: 20060604
  3. MULTIHANCE [Suspect]
     Indication: NUCLEAR MAGNETIC RESONANCE IMAGING
     Dosage: 10 ML ONCE IV
     Route: 042
     Dates: start: 20060604, end: 20060604

REACTIONS (1)
  - HYPERSENSITIVITY [None]
